FAERS Safety Report 25879555 (Version 2)
Quarter: 2025Q4

REPORT INFORMATION
  Report Type: Report from Study
  Country: US (occurrence: US)
  Receive Date: 20251003
  Receipt Date: 20251017
  Transmission Date: 20260117
  Serious: Yes (Other)
  Sender: ALEXION PHARMACEUTICALS
  Company Number: US-AstraZeneca-CH-00959119A

PATIENT
  Age: 72 Year
  Sex: Male

DRUGS (3)
  1. STRENSIQ [Suspect]
     Active Substance: ASFOTASE ALFA
     Indication: Hypophosphatasia
     Dosage: 90 MILLIGRAM, QD
     Route: 065
  2. STRENSIQ [Suspect]
     Active Substance: ASFOTASE ALFA
     Dosage: 90 MILLIGRAM, QD
     Route: 065
  3. GABAPENTIN [Concomitant]
     Active Substance: GABAPENTIN
     Indication: Diabetic neuropathy
     Route: 065

REACTIONS (20)
  - Loss of consciousness [Unknown]
  - Bladder dysfunction [Unknown]
  - Hypoaesthesia [Unknown]
  - Functional gastrointestinal disorder [Unknown]
  - Neuralgia [Unknown]
  - Feeling abnormal [Unknown]
  - Back pain [Unknown]
  - Arthralgia [Unknown]
  - Seasonal allergy [Unknown]
  - Product dose omission issue [Unknown]
  - Amnesia [Unknown]
  - Headache [Unknown]
  - Back pain [Unknown]
  - Fall [Unknown]
  - Mobility decreased [Unknown]
  - Paraesthesia [Unknown]
  - Pyrexia [Unknown]
  - Pain [Unknown]
  - Irritability [Unknown]
  - Malaise [Unknown]
